FAERS Safety Report 25814273 (Version 1)
Quarter: 2025Q3

REPORT INFORMATION
  Report Type: Spontaneous
  Country: EU (occurrence: EU)
  Receive Date: 20250917
  Receipt Date: 20250917
  Transmission Date: 20251021
  Serious: Yes (Hospitalization, Other)
  Sender: AMGEN
  Company Number: EU-AMGEN-FRASP2025180721

PATIENT
  Age: 59 Year
  Sex: Male

DRUGS (2)
  1. ADALIMUMAB [Suspect]
     Active Substance: ADALIMUMAB
     Indication: Ankylosing spondylitis
     Dosage: 40 MILLIGRAM, Q2WK
     Route: 065
     Dates: start: 201909
  2. ADALIMUMAB [Suspect]
     Active Substance: ADALIMUMAB
     Route: 065
     Dates: start: 202110

REACTIONS (3)
  - Antisynthetase syndrome [Not Recovered/Not Resolved]
  - Therapeutic product effect incomplete [Unknown]
  - Ankylosing spondylitis [Unknown]

NARRATIVE: CASE EVENT DATE: 20200801
